FAERS Safety Report 16532330 (Version 3)
Quarter: 2019Q3

REPORT INFORMATION
  Report Type: Spontaneous
  Country: US (occurrence: US)
  Receive Date: 20190705
  Receipt Date: 20190927
  Transmission Date: 20191004
  Serious: No
  Sender: FDA-Public Use
  Company Number: US-PFIZER INC-2019283923

PATIENT
  Age: 68 Year
  Sex: Male
  Weight: 80.74 kg

DRUGS (2)
  1. XELJANZ [Suspect]
     Active Substance: TOFACITINIB CITRATE
     Indication: COLITIS ULCERATIVE
     Dosage: UNK
     Dates: start: 20190215
  2. XELJANZ [Suspect]
     Active Substance: TOFACITINIB CITRATE
     Dosage: 10 MG, UNK (10MG X2)
     Dates: start: 20190401, end: 20190501

REACTIONS (3)
  - Therapeutic product effect incomplete [Unknown]
  - Depression [Unknown]
  - Body height decreased [Unknown]
